FAERS Safety Report 20153138 (Version 2)
Quarter: 2022Q2

REPORT INFORMATION
  Report Type: Report from Study
  Country: DE (occurrence: None)
  Receive Date: 20211206
  Receipt Date: 20220427
  Transmission Date: 20220720
  Serious: Yes (Other)
  Sender: FDA-Public Use
  Company Number: DE-Merck Healthcare KGaA-9283880

PATIENT
  Age: 13 Year
  Sex: Male
  Weight: 57 kg

DRUGS (3)
  1. SAIZEN [Suspect]
     Active Substance: SOMATROPIN
     Indication: Growth hormone deficiency
     Route: 058
     Dates: start: 20130812
  2. SAIZEN [Suspect]
     Active Substance: SOMATROPIN
     Route: 058
     Dates: start: 201501, end: 202006
  3. SAIZEN [Suspect]
     Active Substance: SOMATROPIN
     Dosage: DRUG REINTRODUCED
     Route: 058
     Dates: start: 202110

REACTIONS (2)
  - Renal neoplasm [Not Recovered/Not Resolved]
  - Off label use [Unknown]

NARRATIVE: CASE EVENT DATE: 20200604
